FAERS Safety Report 5673946-4 (Version None)
Quarter: 2008Q2

REPORT INFORMATION
  Report Type: 
  Country: None (occurrence: None)
  Receive Date: 20080226
  Receipt Date: 20070219
  Transmission Date: 20081010
  Serious: Yes (Hospitalization, Other)
  Sender: FDA-Public Use
  Company Number: DSA_28396_2006

PATIENT
  Sex: Female

DRUGS (6)
  1. VASOTEC [Suspect]
     Indication: BLOOD PRESSURE INCREASED
     Dosage: (10 MG BID ORAL)
     Route: 048
     Dates: start: 20060301, end: 20060401
  2. VASOTEC [Suspect]
     Indication: HYPERTENSION
     Dosage: (20 MG BID ORAL)
     Route: 048
     Dates: start: 20060401, end: 20060101
  3. VASOTEC [Suspect]
     Indication: HYPERTENSION
     Dosage: (20 MG 1X/MORNING ORAL)
     Route: 048
     Dates: start: 20060101
  4. DIOVAN /01319601/ [Concomitant]
  5. TOPROL-XL [Concomitant]
  6. FUROSEMIDE [Concomitant]

REACTIONS (2)
  - DRUG INEFFECTIVE [None]
  - PHARMACEUTICAL PRODUCT COMPLAINT [None]
